FAERS Safety Report 7628772-3 (Version None)
Quarter: 2011Q3

REPORT INFORMATION
  Report Type: 
  Country: None (occurrence: None)
  Receive Date: 20110722
  Receipt Date: 20110711
  Transmission Date: 20111222
  Serious: Yes (Life-Threatening, Hospitalization, Other)
  Sender: FDA-Public Use
  Company Number: US-BAYER-2011-004756

PATIENT
  Age: 49 Year
  Sex: Female
  Weight: 57 kg

DRUGS (17)
  1. FEMARA [Concomitant]
     Indication: BREAST CANCER
     Dosage: UNK
     Dates: start: 20090301, end: 20090601
  2. FAMOTIDINE [Concomitant]
     Dosage: 20 MG, UNK
     Dates: start: 20091207
  3. AZITHROMYCIN [Concomitant]
     Dosage: UNK
     Dates: start: 20091118
  4. VALTREX [Concomitant]
     Indication: HERPES SIMPLEX
     Dosage: 1000 MG, BID
     Dates: start: 20090925, end: 20090925
  5. MULTI-VITAMIN [Concomitant]
     Dosage: UNK UNK, QD
     Route: 048
  6. ZITHROMAX [Concomitant]
     Dosage: 250 MG, UNK
     Route: 048
     Dates: start: 20091118, end: 20091101
  7. IBUPROFEN (ADVIL) [Concomitant]
     Dosage: UNK
     Dates: start: 20090101, end: 20100101
  8. TRAMADOL HCL [Concomitant]
     Indication: PAIN
     Dosage: 37.5/325
  9. YAZ [Suspect]
     Dosage: UNK
     Dates: start: 20060101, end: 20100101
  10. ZITHROMAX [Concomitant]
     Dosage: UNK
     Dates: start: 20030101, end: 20090101
  11. SCOPOLAMINE [Concomitant]
     Dosage: 1.5 MG, UNK
     Route: 062
  12. ZOLPIDEM [Concomitant]
     Dosage: UNK
     Dates: start: 20090601
  13. ZOLOFT [Concomitant]
     Indication: DEPRESSION
     Dosage: UNK
     Dates: start: 20090901
  14. HYDROCODONE BITARTRATE AND ACETAMINOPHEN [Concomitant]
     Indication: PROCEDURAL PAIN
     Dosage: 5/500MG
     Dates: end: 20091214
  15. METOCLOPRAMIDE [Concomitant]
     Dosage: 10 MG, UNK
     Dates: start: 20091207
  16. REGLAN [Concomitant]
     Dosage: 20 MG, UNK
     Route: 048
  17. FLONASE [Concomitant]
     Indication: MULTIPLE ALLERGIES
     Route: 045

REACTIONS (5)
  - EMOTIONAL DISTRESS [None]
  - DEEP VEIN THROMBOSIS [None]
  - PAIN [None]
  - PULMONARY EMBOLISM [None]
  - GENERAL PHYSICAL HEALTH DETERIORATION [None]
